FAERS Safety Report 15187175 (Version 1)
Quarter: 2018Q3

REPORT INFORMATION
  Report Type: Report from Study
  Country: US (occurrence: US)
  Receive Date: 20180723
  Receipt Date: 20180723
  Transmission Date: 20181010
  Serious: No
  Sender: FDA-Public Use
  Company Number: US-EXELIXIS-CABO-18012443

PATIENT
  Age: 74 Year
  Sex: Male

DRUGS (14)
  1. SENNOSIDE [Concomitant]
     Active Substance: SENNOSIDES
  2. SIMETHICONE (DIMETHICONE) [Concomitant]
     Active Substance: DIMETHICONE
  3. INSULIN ASPART [Concomitant]
     Active Substance: INSULIN ASPART
  4. NIVOLUMAB [Concomitant]
     Active Substance: NIVOLUMAB
  5. PREDNISONE. [Concomitant]
     Active Substance: PREDNISONE
  6. ALUMINUM MAGNESIUM OXIDE [Concomitant]
  7. AMLODIPINE [Concomitant]
     Active Substance: AMLODIPINE BESYLATE
  8. DOCUSATE [Concomitant]
     Active Substance: DOCUSATE
  9. LOPERAMIDE [Concomitant]
     Active Substance: LOPERAMIDE
  10. CABOMETYX [Suspect]
     Active Substance: CABOZANTINIB S-MALATE
     Indication: RENAL CANCER
     Dosage: 40 MG, QD
     Route: 048
     Dates: start: 20171117, end: 20171217
  11. CARVEDILOL. [Concomitant]
     Active Substance: CARVEDILOL
  12. ACETAMINOPHEN. [Concomitant]
     Active Substance: ACETAMINOPHEN
  13. INSULIN GLARGINE [Concomitant]
     Active Substance: INSULIN GLARGINE
  14. ATORVASTATIN [Concomitant]
     Active Substance: ATORVASTATIN

REACTIONS (1)
  - Hypertension [Unknown]

NARRATIVE: CASE EVENT DATE: 20171217
